FAERS Safety Report 10244209 (Version 1)
Quarter: 2014Q1

REPORT INFORMATION
  Report Type: Spontaneous
  Country: US (occurrence: None)
  Receive Date: 20140306
  Receipt Date: 20140306
  Transmission Date: 20141002
  Serious: Yes (Other)
  Sender: FDA-Public Use
  Company Number: 163-21880-13052858

PATIENT
  Age: 53 Year
  Sex: Male

DRUGS (18)
  1. REVLIMID (LENALIDOMIDE) (CAPSULES) [Suspect]
     Indication: PLASMA CELL MYELOMA
     Dosage: 25 MG, 14 IN 14 D, PO
     Route: 048
     Dates: start: 201007
  2. AMOXICILLIN (AMOXICILLIN) (TABLETS) [Concomitant]
  3. GABAPENTIN (GABAPENTIN) (TABLETS) [Concomitant]
  4. AZITHROMYCIN (AZITHROMYCIN) [Concomitant]
  5. CLOBETASOL (CLOBETASOL) (CREAM) [Concomitant]
  6. NEXIUM (ESOMEPRAZOLE) (CAPSULES) [Concomitant]
  7. CRESTOR (ROSUSVASTATIN) [Concomitant]
  8. AMITRIPTYLINE (AMITRIPTYLINE) (TABLETS) [Concomitant]
  9. PEG-3350 (MACROGOL 3350) [Concomitant]
  10. FISH OIL (FISH OIL) [Concomitant]
  11. TRAMADOL HCL (TRAMADOL HYDROCHLORIDE) (TABLETS) [Concomitant]
  12. FINACEA (AZELAIC ACID) (GEL) [Concomitant]
  13. SODIUM SULFACETAMIDE (SULFACETAMIDE SODIUM) [Concomitant]
  14. ADVIL (IBUPROFEN) (TABLETS) [Concomitant]
  15. OMEGA 3 (FISH OIL) [Concomitant]
  16. ALEVE (NAPROXEN SODIUM) [Concomitant]
  17. LEVOFLOXACIN (LEVOFLOXACIN) [Concomitant]
  18. AZIANA (TRECLIN) (GEL) [Concomitant]

REACTIONS (4)
  - Folliculitis [None]
  - Nasopharyngitis [None]
  - Sinus congestion [None]
  - Rosacea [None]
